FAERS Safety Report 19770293 (Version 2)
Quarter: 2021Q3

REPORT INFORMATION
  Report Type: Report from Study
  Country: CN (occurrence: CN)
  Receive Date: 20210901
  Receipt Date: 20210915
  Transmission Date: 20211014
  Serious: Yes (Hospitalization)
  Sender: FDA-Public Use
  Company Number: CN-ROCHE-2899255

PATIENT
  Age: 49 Year
  Sex: Female
  Weight: 62.5 kg

DRUGS (6)
  1. CALCIUM GLUCONATE. [Concomitant]
     Active Substance: CALCIUM GLUCONATE
     Indication: HYPOCALCAEMIA
     Route: 041
     Dates: start: 20210812, end: 20210812
  2. TRASTUZUMAB. [Suspect]
     Active Substance: TRASTUZUMAB
     Route: 041
     Dates: start: 20210113
  3. TRASTUZUMAB. [Suspect]
     Active Substance: TRASTUZUMAB
     Indication: BREAST CANCER
     Route: 041
     Dates: start: 20201223, end: 20201223
  4. DOCETAXEL. [Suspect]
     Active Substance: DOCETAXEL
     Indication: BREAST CANCER
     Route: 041
     Dates: start: 20201223, end: 20210721
  5. BLINDED PYROTINIB MALEATE/PLACEBO [Suspect]
     Active Substance: PYROTINIB MALEATE
     Indication: BREAST CANCER
     Route: 048
     Dates: start: 20201223, end: 20210812
  6. SUHUANG ZHIKE CAPSULE (TRADITIONAL CHINESE MEDICINE) [Concomitant]
     Indication: COUGH
     Route: 048
     Dates: start: 20210811

REACTIONS (2)
  - Pyrexia [Not Recovered/Not Resolved]
  - Pneumonia [Not Recovered/Not Resolved]

NARRATIVE: CASE EVENT DATE: 20210812
